FAERS Safety Report 5515174-9 (Version None)
Quarter: 2007Q4

REPORT INFORMATION
  Report Type: 
  Country: None (occurrence: None)
  Receive Date: 20071113
  Receipt Date: 20070130
  Transmission Date: 20080405
  Serious: No
  Sender: FDA-Public Use
  Company Number: A0637633A

PATIENT
  Age: 60 Year
  Sex: Male

DRUGS (7)
  1. COREG [Suspect]
     Indication: LEFT VENTRICULAR DYSFUNCTION
     Dosage: 6.25MG TWICE PER DAY
     Route: 048
     Dates: start: 20060402
  2. COUMADIN [Concomitant]
  3. ALTACE [Concomitant]
  4. ALDACTONE [Concomitant]
  5. DIGOXIN [Concomitant]
  6. CENTRUM MULTIVITAMIN [Concomitant]
  7. VITAMIN [Concomitant]

REACTIONS (3)
  - CARDIAC PACEMAKER INSERTION [None]
  - IMPLANTABLE DEFIBRILLATOR INSERTION [None]
  - LETHARGY [None]
